FAERS Safety Report 6141678-4 (Version None)
Quarter: 2009Q2

REPORT INFORMATION
  Report Type: 
  Country: None (occurrence: None)
  Receive Date: 20090402
  Receipt Date: 20090326
  Transmission Date: 20091009
  Serious: Yes (Death)
  Sender: FDA-Public Use
  Company Number: TR-ELI_LILLY_AND_COMPANY-TR200903007565

PATIENT
  Age: 66 Year
  Sex: Female

DRUGS (2)
  1. HUMALOG [Suspect]
     Indication: DIABETES MELLITUS
     Dosage: 18 U, 3/D
     Route: 058
  2. LANTUS [Concomitant]
     Indication: DIABETES MELLITUS
     Dosage: 30 U, DAILY (1/D)
     Route: 065

REACTIONS (1)
  - HEPATIC CIRRHOSIS [None]
